FAERS Safety Report 16565100 (Version 1)
Quarter: 2019Q3

REPORT INFORMATION
  Report Type: Spontaneous
  Country: US (occurrence: US)
  Receive Date: 20190712
  Receipt Date: 20190712
  Transmission Date: 20191004
  Serious: No
  Sender: FDA-Public Use
  Company Number: US-ASTRAZENECA-2019SE99770

PATIENT
  Sex: Female

DRUGS (2)
  1. NEXIUM 24HR [Suspect]
     Active Substance: ESOMEPRAZOLE MAGNESIUM
     Route: 048
     Dates: start: 201906
  2. NEXIUM 24HR CLEARMINIS [Suspect]
     Active Substance: ESOMEPRAZOLE MAGNESIUM
     Route: 048
     Dates: start: 201906

REACTIONS (7)
  - Dehydration [Unknown]
  - Fatigue [Unknown]
  - Muscle spasms [Unknown]
  - Dizziness [Unknown]
  - Malnutrition [Unknown]
  - Myalgia [Unknown]
  - Abdominal distension [Unknown]

NARRATIVE: CASE EVENT DATE: 2019
